FAERS Safety Report 10461986 (Version 1)
Quarter: 2014Q3

REPORT INFORMATION
  Report Type: Spontaneous
  Country: US (occurrence: None)
  Receive Date: 20140917
  Receipt Date: 20140917
  Transmission Date: 20150326
  Serious: Yes (Hospitalization)
  Sender: FDA-Public Use
  Company Number: None

PATIENT
  Age: 54 Year
  Sex: Male
  Weight: 80 kg

DRUGS (8)
  1. SILDENAFIL [Concomitant]
     Active Substance: SILDENAFIL
  2. SOFOSBUVIR [Suspect]
     Active Substance: SOFOSBUVIR
     Indication: HEPATITIS C
     Dosage: 400 2X DAILY ORAL
     Route: 048
     Dates: start: 20140325
  3. LASIX [Concomitant]
     Active Substance: FUROSEMIDE
  4. RIBAVIRIN. [Suspect]
     Active Substance: RIBAVIRIN
     Indication: HEPATITIS C
     Route: 048
     Dates: start: 20140325
  5. RIFAXIMIN [Concomitant]
     Active Substance: RIFAXIMIN
  6. MORPHINE [Concomitant]
     Active Substance: MORPHINE
  7. PROPANOLOL [Concomitant]
     Active Substance: PROPRANOLOL HYDROCHLORIDE
  8. SPIRONOLACTONE. [Concomitant]
     Active Substance: SPIRONOLACTONE

REACTIONS (3)
  - Fluid overload [None]
  - Drug dose omission [None]
  - Hyponatraemia [None]

NARRATIVE: CASE EVENT DATE: 20140623
